FAERS Safety Report 5394953-5 (Version None)
Quarter: 2007Q3

REPORT INFORMATION
  Report Type: 
  Country: None (occurrence: None)
  Receive Date: 20070724
  Receipt Date: 20070717
  Transmission Date: 20080115
  Serious: Yes (Hospitalization, Other)
  Sender: FDA-Public Use
  Company Number: PHBS2007JP09263

PATIENT
  Age: 55 Year
  Sex: Male

DRUGS (5)
  1. SANDOSTATIN SUBCUTANEOUS [Suspect]
     Indication: GASTROINTESTINAL OBSTRUCTION
     Dosage: 300 UG/DAY
     Route: 058
     Dates: start: 20070420, end: 20070515
  2. FAMOTIDINE [Concomitant]
     Dosage: 40 MG/DAY
     Route: 042
     Dates: start: 20070314, end: 20070406
  3. PANTOL [Concomitant]
     Dosage: 400 MG/DAY
     Route: 042
     Dates: start: 20070314, end: 20070420
  4. ELEMENMIC [Concomitant]
     Dosage: 2 ML/DAY
     Route: 042
     Dates: start: 20070314, end: 20070419
  5. PACETCOOL [Concomitant]
     Dosage: 2 G/DAY
     Route: 042
     Dates: start: 20070417, end: 20070429

REACTIONS (6)
  - BRADYCARDIA [None]
  - CARDIAC PACEMAKER INSERTION [None]
  - GASTRO-JEJUNOSTOMY [None]
  - GASTROINTESTINAL CARCINOMA [None]
  - HYPOTHYROIDISM [None]
  - SURGERY [None]
